FAERS Safety Report 9714338 (Version 1)
Quarter: 2013Q4

REPORT INFORMATION
  Report Type: Report from Study
  Country: NL (occurrence: NL)
  Receive Date: 20131126
  Receipt Date: 20131126
  Transmission Date: 20140711
  Serious: Yes (Hospitalization, Other)
  Sender: FDA-Public Use
  Company Number: NL-VERTEX PHARMACEUTICALS INC-2013-011413

PATIENT
  Age: 52 Year
  Sex: Female
  Weight: 44 kg

DRUGS (10)
  1. VX-950 (TELAPREVIR) [Suspect]
     Indication: HEPATITIS C
     Dosage: 1125 MG, BID, TABLET
     Dates: start: 20131112, end: 201311
  2. SEROXAT [Suspect]
     Indication: DEPRESSION
     Route: 048
  3. PEG-INTERFERON [Suspect]
     Indication: HEPATITIS C
     Dosage: 180 ?G, QW
     Dates: start: 20131112, end: 201311
  4. RIBAVIRIN [Suspect]
     Indication: HEPATITIS C
     Dates: start: 20131112, end: 20131112
  5. RIBAVIRIN [Suspect]
     Dosage: 600 MG, QD
     Dates: start: 20131113, end: 201311
  6. METOPROLOL [Concomitant]
     Dosage: 50 MG, QD
  7. OXAZEPAM [Concomitant]
     Dosage: MAX OF TWICE A DAY
     Dates: start: 20131118
  8. NIFEDIPINE [Concomitant]
     Dosage: 30 MG, QD
     Dates: start: 20130827
  9. LISINOPRIL [Concomitant]
     Dosage: 10 MG, BID
     Dates: start: 20130827
  10. NEXIUM [Concomitant]
     Dosage: 40 MG, BID
     Dates: start: 20130827

REACTIONS (8)
  - Gastroenteritis [Recovered/Resolved]
  - Myalgia [Not Recovered/Not Resolved]
  - Renal impairment [Not Recovered/Not Resolved]
  - Toxicity to various agents [Not Recovered/Not Resolved]
  - Dehydration [Recovered/Resolved]
  - Pancreatitis acute [Not Recovered/Not Resolved]
  - Vomiting [Not Recovered/Not Resolved]
  - Diarrhoea [Not Recovered/Not Resolved]
